FAERS Safety Report 4890963-2 (Version None)
Quarter: 2006Q1

REPORT INFORMATION
  Report Type: 
  Country: None (occurrence: None)
  Receive Date: 20060125
  Receipt Date: 20060119
  Transmission Date: 20060701
  Serious: Yes (Other)
  Sender: FDA-Public Use
  Company Number: US-JNJFOC-20060104267

PATIENT
  Sex: Male
  Weight: 82.56 kg

DRUGS (8)
  1. INFLIXIMAB [Suspect]
     Indication: RHEUMATOID ARTHRITIS
     Route: 042
  2. TREXALL [Concomitant]
  3. MOBIC [Concomitant]
  4. NEXIUM [Concomitant]
  5. TIMOLOL MALEATE [Concomitant]
  6. RESTASIS [Concomitant]
  7. THERATEARS [Concomitant]
  8. FIBERCON [Concomitant]

REACTIONS (1)
  - BASAL CELL CARCINOMA [None]
